FAERS Safety Report 4628047-0 (Version None)
Quarter: 2005Q2

REPORT INFORMATION
  Report Type: 
  Country: None (occurrence: None)
  Receive Date: 20050406
  Receipt Date: 20050329
  Transmission Date: 20051028
  Serious: Yes (Hospitalization)
  Sender: FDA-Public Use
  Company Number: FR-JNJFOC-20050307057

PATIENT
  Age: 70 Year
  Sex: Male

DRUGS (11)
  1. DURAGESIC-100 [Suspect]
     Indication: DRUG USE FOR UNKNOWN INDICATION
     Route: 062
  2. VELCADE [Suspect]
     Indication: MULTIPLE MYELOMA
     Route: 042
  3. VFEND [Suspect]
     Indication: DRUG USE FOR UNKNOWN INDICATION
     Route: 049
  4. VFEND [Suspect]
     Indication: DRUG USE FOR UNKNOWN INDICATION
     Route: 049
  5. NEURONTIN [Concomitant]
  6. JOSIR [Concomitant]
  7. LEXOMIL [Concomitant]
     Dosage: 1/4 TABLET.
  8. LYTOS [Concomitant]
  9. NEXIUM [Concomitant]
  10. NORSET [Concomitant]
  11. ACTISKENAN [Concomitant]

REACTIONS (1)
  - THROMBOPHLEBITIS [None]
